FAERS Safety Report 9206125 (Version 1)
Quarter: 2013Q1

REPORT INFORMATION
  Report Type: Spontaneous
  Country: US (occurrence: None)
  Receive Date: 20120709
  Receipt Date: 20120709
  Transmission Date: 20140127
  Serious: Yes (Other)
  Sender: FDA-Public Use
  Company Number: PHHY2010US41068

PATIENT
  Age: 85 Year
  Sex: Male
  Weight: 60.3 kg

DRUGS (10)
  1. GLEEVEC (IMATINIB) UNKNOWN [Suspect]
     Indication: SOFT TISSUE CANCER
     Route: 048
     Dates: start: 200708
  2. GLEEVEC (IMATINIB) UNKNOWN [Suspect]
     Indication: GASTROINTESTINAL STROMAL TUMOUR
     Route: 048
     Dates: start: 200708
  3. TEMAZEPAM (TEMAZEPAM) [Concomitant]
  4. POTASSIUM (POTASSIUM) [Concomitant]
  5. SYNTHROID (LEVOTHYROXINE SODIUM) [Concomitant]
  6. METOPROLOL (METOPROLOL) [Concomitant]
  7. SUTENT (SUNITINIB MALATE) [Concomitant]
  8. AVODART (DUTASTERIDE) [Concomitant]
  9. UROXATRAL (ALFUZOSIN HYDROCHLORIDE) [Concomitant]
  10. FERROUS SULFATE (FERROUS SULFATE) [Concomitant]

REACTIONS (4)
  - Haematochezia [None]
  - Diarrhoea [None]
  - Drug intolerance [None]
  - Dizziness [None]
